FAERS Safety Report 14630333 (Version 1)
Quarter: 2018Q1

REPORT INFORMATION
  Report Type: Spontaneous
  Country: MX (occurrence: MX)
  Receive Date: 20180313
  Receipt Date: 20180313
  Transmission Date: 20180509
  Serious: Yes (Other)
  Sender: FDA-Public Use
  Company Number: MX-009507513-1803MEX003395

PATIENT
  Age: 61 Year
  Sex: Female

DRUGS (3)
  1. ERTAPENEM SODIUM [Suspect]
     Active Substance: ERTAPENEM SODIUM
     Indication: PATHOGEN RESISTANCE
     Dosage: UNK
     Route: 042
  2. ERTAPENEM SODIUM [Suspect]
     Active Substance: ERTAPENEM SODIUM
     Indication: ESCHERICHIA INFECTION
  3. ELECTROLYTES (UNSPECIFIED) [Concomitant]
     Active Substance: ELECTROLYTES NOS
     Indication: HYPOCALCAEMIA
     Dosage: UNK
     Route: 042

REACTIONS (1)
  - Drug ineffective [Recovering/Resolving]
